FAERS Safety Report 4967120-4 (Version None)
Quarter: 2006Q2

REPORT INFORMATION
  Report Type: 
  Country: None (occurrence: None)
  Receive Date: 20060403
  Receipt Date: 20060320
  Transmission Date: 20061013
  Serious: Yes (Hospitalization)
  Sender: FDA-Public Use
  Company Number: 2005167939

PATIENT
  Age: 52 Year
  Sex: Female

DRUGS (3)
  1. BEXTRA [Suspect]
     Indication: PAIN
     Dosage: 20 MG (1 IN 1 D), ORAL
     Route: 048
     Dates: start: 20031202
  2. VICODIN [Concomitant]
  3. ANTIHYPERTENSIVES (ANTIHYPERTENSIVES) [Concomitant]

REACTIONS (3)
  - CONDITION AGGRAVATED [None]
  - HAEMODIALYSIS [None]
  - RENAL FAILURE [None]
